FAERS Safety Report 5939264-1 (Version None)
Quarter: 2008Q4

REPORT INFORMATION
  Report Type: 
  Country: None (occurrence: None)
  Receive Date: 20081103
  Receipt Date: 20081021
  Transmission Date: 20090506
  Serious: Yes (Life-Threatening, Hospitalization, Other)
  Sender: FDA-Public Use
  Company Number: SE-NOVOPROD-266716

PATIENT
  Sex: Female
  Weight: 20 kg

DRUGS (1)
  1. NORDITROPIN [Suspect]
     Indication: TURNER'S SYNDROME
     Dosage: 1 MG, QD
     Dates: start: 20040212, end: 20061025

REACTIONS (2)
  - DIABETIC KETOACIDOSIS [None]
  - TYPE 1 DIABETES MELLITUS [None]
